FAERS Safety Report 5063756-3 (Version None)
Quarter: 2006Q3

REPORT INFORMATION
  Report Type: 
  Country: None (occurrence: None)
  Receive Date: 20060703
  Receipt Date: 20060424
  Transmission Date: 20061208
  Serious: No
  Sender: FDA-Public Use
  Company Number: 2006S1003837

PATIENT
  Age: 38 Year
  Sex: Male
  Weight: 52.1637 kg

DRUGS (11)
  1. CLOZAPINE [Suspect]
     Indication: SCHIZOAFFECTIVE DISORDER
     Dosage: SEE IMAGE
     Route: 048
     Dates: start: 20041228
  2. CLOZAPINE [Suspect]
     Indication: SCHIZOPHRENIA
     Dosage: SEE IMAGE
     Route: 048
     Dates: start: 20041228
  3. CLOZAPINE [Suspect]
     Indication: SCHIZOAFFECTIVE DISORDER
     Dosage: SEE IMAGE
     Route: 048
     Dates: start: 20041228
  4. CLOZAPINE [Suspect]
     Indication: SCHIZOPHRENIA
     Dosage: SEE IMAGE
     Route: 048
     Dates: start: 20041228
  5. LITHIUM CARBONATE [Concomitant]
  6. BENZTROPINE MESYLATE [Concomitant]
  7. PROPYLTHIOURACIL [Concomitant]
  8. FLUPHENAZINE [Concomitant]
  9. METOPROLOL TARTRATE [Concomitant]
  10. VITAMINS NOS [Concomitant]
  11. VALPROATE SODIUM [Concomitant]

REACTIONS (1)
  - GRANULOCYTOPENIA [None]
